FAERS Safety Report 23357020 (Version 1)
Quarter: 2024Q1

REPORT INFORMATION
  Report Type: Spontaneous
  Country: CN (occurrence: CN)
  Receive Date: 20240102
  Receipt Date: 20240102
  Transmission Date: 20240409
  Serious: Yes (Hospitalization)
  Sender: FDA-Public Use
  Company Number: None

PATIENT
  Age: 51 Year
  Sex: Female
  Weight: 50 kg

DRUGS (4)
  1. CYCLOPHOSPHAMIDE [Suspect]
     Active Substance: CYCLOPHOSPHAMIDE
     Indication: Breast cancer female
     Dosage: 950 MG, ONCE, DILUTED WITH 100 ML OF 0.9% SODIUM CHLORIDE, 1 BAG, AT 10:00
     Route: 041
     Dates: start: 20231125, end: 20231125
  2. SODIUM CHLORIDE [Suspect]
     Active Substance: SODIUM CHLORIDE
     Indication: Medication dilution
     Dosage: (0.9%), 100 ML, ONCE, USED TO DILUTE 950 MG OF CYCLOPHOSPHAMIDE, 1 BAG, AT 10:00
     Route: 041
     Dates: start: 20231125, end: 20231125
  3. SODIUM CHLORIDE [Suspect]
     Active Substance: SODIUM CHLORIDE
     Dosage: (0.9%), 250 ML, ONCE, USED TO DILUTE 115 MG OF DOCETAXEL, 1 BAG
     Route: 041
     Dates: start: 20231125, end: 20231125
  4. DOCETAXEL [Suspect]
     Active Substance: DOCETAXEL\DOCETAXEL ANHYDROUS
     Indication: Breast cancer female
     Dosage: 115 MG, ONCE, DILUTED WITH 250 ML OF 0.9% SODIUM CHLORIDE, 1 BAG
     Route: 041
     Dates: start: 20231125, end: 20231125

REACTIONS (1)
  - Hepatic function abnormal [Recovering/Resolving]

NARRATIVE: CASE EVENT DATE: 20231212
